FAERS Safety Report 9015472 (Version 1)
Quarter: 2013Q1

REPORT INFORMATION
  Report Type: Spontaneous
  Country: US (occurrence: US)
  Receive Date: 20130116
  Receipt Date: 20130116
  Transmission Date: 20140127
  Serious: Yes (Hospitalization)
  Sender: FDA-Public Use
  Company Number: US-BAYER-2013-004538

PATIENT
  Age: 41 Year
  Sex: Female
  Weight: 63.04 kg

DRUGS (6)
  1. YAZ [Suspect]
  2. TETRACYCLINE [Concomitant]
     Dosage: 250 MG, UNK
     Route: 048
     Dates: start: 20090518, end: 20101011
  3. BENADRYL [Concomitant]
  4. ZYRTEC [Concomitant]
  5. KLONOPIN [Concomitant]
  6. TYLENOL [Concomitant]

REACTIONS (1)
  - Deep vein thrombosis [None]
